FAERS Safety Report 16868979 (Version 1)
Quarter: 2019Q3

REPORT INFORMATION
  Report Type: Spontaneous
  Country: US (occurrence: US)
  Receive Date: 20190930
  Receipt Date: 20190930
  Transmission Date: 20191005
  Serious: Yes (Hospitalization)
  Sender: FDA-Public Use
  Company Number: US-GLAXOSMITHKLINE-US2019175433

PATIENT
  Age: 58 Year
  Sex: Female

DRUGS (1)
  1. BENLYSTA [Suspect]
     Active Substance: BELIMUMAB
     Indication: PRODUCT USED FOR UNKNOWN INDICATION
     Dosage: UNK UNK, WE
     Route: 042
     Dates: start: 20190612, end: 20190826

REACTIONS (4)
  - Condition aggravated [Unknown]
  - Lichen planus [Recovered/Resolved]
  - Central nervous system lesion [Unknown]
  - Fatigue [Unknown]

NARRATIVE: CASE EVENT DATE: 201906
